FAERS Safety Report 7967794 (Version 7)
Quarter: 2012Q4

REPORT INFORMATION
  Report Type: Report from Study
  Country: US (occurrence: US)
  Receive Date: 20110531
  Receipt Date: 20121205
  Transmission Date: 20130627
  Serious: Yes (Other)
  Sender: FDA-Public Use
  Company Number: US-UCBSA-019781

PATIENT
  Age: 0 Year
  Sex: Male
  Weight: 3.67 kg

DRUGS (5)
  1. KEPPRA [Suspect]
     Indication: EPILEPSY
     Route: 064
     Dates: start: 2010, end: 20100827
  2. KEPPRA [Suspect]
     Indication: EPILEPSY
     Route: 064
     Dates: end: 2010
  3. FOLIC ACID [Concomitant]
     Indication: MEDICAL DIET
     Route: 064
  4. FROVA [Concomitant]
     Route: 064
  5. PRENATAL VITAMINS [Concomitant]
     Indication: PREGNANCY
     Dosage: 1 PILL
     Route: 064

REACTIONS (6)
  - Foetal heart rate abnormal [Recovered/Resolved]
  - Neonatal aspiration [Recovered/Resolved]
  - Plagiocephaly [Unknown]
  - Torticollis [Unknown]
  - Lip disorder [Unknown]
  - Foetal exposure during pregnancy [Recovered/Resolved]
